FAERS Safety Report 6261210-4 (Version None)
Quarter: 2009Q2

REPORT INFORMATION
  Report Type: 
  Country: None (occurrence: None)
  Receive Date: 20090607
  Receipt Date: 20090618
  Transmission Date: 20091009
  Serious: Yes (Other)
  Sender: FDA-Public Use
  Company Number: JPI-P-007702

PATIENT
  Age: 27 Year
  Sex: Female
  Weight: 48.9885 kg

DRUGS (6)
  1. XYREM [Suspect]
     Indication: HYPERSOMNIA
     Dosage: ORAL; 6 GM (3 GM, 2 IN 1 D), ORAL; 8 GM (4 GM, 2 IN 1 D), ORAL; 4.5 GM (2.25GM, 2 IN 1 D), ORAL
     Route: 048
     Dates: end: 20090101
  2. XYREM [Suspect]
     Indication: HYPERSOMNIA
     Dosage: ORAL; 6 GM (3 GM, 2 IN 1 D), ORAL; 8 GM (4 GM, 2 IN 1 D), ORAL; 4.5 GM (2.25GM, 2 IN 1 D), ORAL
     Route: 048
     Dates: end: 20090613
  3. XYREM [Suspect]
     Indication: HYPERSOMNIA
     Dosage: ORAL; 6 GM (3 GM, 2 IN 1 D), ORAL; 8 GM (4 GM, 2 IN 1 D), ORAL; 4.5 GM (2.25GM, 2 IN 1 D), ORAL
     Route: 048
     Dates: start: 20090614
  4. METHYLPHENIDATE HCL [Concomitant]
  5. ATENOLOL [Concomitant]
  6. FLUOXETINE HYDROCHLORIDE [Concomitant]

REACTIONS (6)
  - BURNING MOUTH SYNDROME [None]
  - CONDITION AGGRAVATED [None]
  - HYPOPHAGIA [None]
  - MIDDLE INSOMNIA [None]
  - TACHYCARDIA [None]
  - WEIGHT DECREASED [None]
